FAERS Safety Report 10076173 (Version 1)
Quarter: 2014Q2

REPORT INFORMATION
  Report Type: Spontaneous
  Country: IT (occurrence: IT)
  Receive Date: 20140414
  Receipt Date: 20140414
  Transmission Date: 20141212
  Serious: Yes (Other)
  Sender: FDA-Public Use
  Company Number: IT-ELI_LILLY_AND_COMPANY-IT201404001109

PATIENT
  Age: 82 Year
  Sex: Male

DRUGS (5)
  1. HUMALOG LISPRO [Suspect]
     Indication: TYPE 1 DIABETES MELLITUS
     Dosage: 1 DF, QD
     Route: 058
     Dates: start: 20130101, end: 20130617
  2. LANTUS [Suspect]
     Indication: TYPE 1 DIABETES MELLITUS
     Dosage: 1 DF, QD
     Route: 058
     Dates: start: 20130101, end: 20130617
  3. COUMADIN                           /00014802/ [Concomitant]
     Route: 048
  4. EUTIROX [Concomitant]
     Route: 048
  5. DILATREND [Concomitant]
     Route: 048

REACTIONS (2)
  - Hypoglycaemic unconsciousness [Recovering/Resolving]
  - Head injury [Recovering/Resolving]
